FAERS Safety Report 4452510-9 (Version None)
Quarter: 2004Q3

REPORT INFORMATION
  Report Type: 
  Country: None (occurrence: None)
  Receive Date: 20040916
  Receipt Date: 20040902
  Transmission Date: 20050211
  Serious: Yes (Hospitalization, Other)
  Sender: FDA-Public Use
  Company Number: 2004062825

PATIENT
  Age: 80 Year
  Sex: Female

DRUGS (3)
  1. NEURONTIN [Suspect]
     Indication: NEUROPATHIC PAIN
  2. RISPERDAL [Suspect]
     Indication: ILL-DEFINED DISORDER
  3. ALL OTHER THERAPETUTIC PRODUCTS (ALL OTHER THERAPEUTIC PRODUCTS) [Concomitant]

REACTIONS (3)
  - CARDIAC FAILURE [None]
  - DRUG INTERACTION [None]
  - GENERALISED OEDEMA [None]
